FAERS Safety Report 9224207 (Version 1)
Quarter: 2013Q1

REPORT INFORMATION
  Report Type: Spontaneous
  Country: US (occurrence: None)
  Receive Date: 20120914
  Receipt Date: 20120914
  Transmission Date: 20140127
  Serious: Yes (Other)
  Sender: FDA-Public Use
  Company Number: JPI-P-019591

PATIENT
  Age: 53 Year
  Sex: Male
  Weight: 85.73 kg

DRUGS (4)
  1. XYREM (500 MILLIGRAM/MILLILITERS, SOLUTIOIN) (SODIUM OXYBATE) [Suspect]
     Indication: CATAPLEXY
     Dosage: 4.5 GM (2.25 GM, 2 IN 1 D), ORAL
     Route: 048
     Dates: start: 20110328
  2. DEXTROAMPHETAMINE AND AMPHETAMINE [Concomitant]
  3. PAROXETINE HYDROCHLORIDE [Concomitant]
  4. BUPROPION HYDROCHLORIDE [Concomitant]

REACTIONS (4)
  - Hypertension [None]
  - Dizziness [None]
  - Flushing [None]
  - Ear discomfort [None]
